FAERS Safety Report 4985016-9 (Version None)
Quarter: 2006Q2

REPORT INFORMATION
  Report Type: 
  Country: None (occurrence: None)
  Receive Date: 20060426
  Receipt Date: 20060426
  Transmission Date: 20061013
  Serious: Yes (Hospitalization, Other)
  Sender: FDA-Public Use
  Company Number: None

PATIENT
  Age: 25 Year
  Sex: Male
  Weight: 66.6788 kg

DRUGS (10)
  1. METRONIDAZOLE [Suspect]
     Indication: COLITIS PSEUDOMEMBRANOUS
     Dosage: 300MG  EVERY 6 HOURS  IV
     Route: 042
     Dates: start: 20050327, end: 20050404
  2. MYCOPHENOLATE [Concomitant]
  3. ERYTHROPOETIN [Concomitant]
  4. GANCICLOVIR [Concomitant]
  5. FLUCONAZOLE [Concomitant]
  6. CYCLOSPORINE [Concomitant]
  7. REGULAR INSULIN [Concomitant]
  8. METHYLPREDNISOLONE SODIUM SUCCINATE [Concomitant]
  9. TOBRAMYCIN INHALATION [Concomitant]
  10. PANTOPRAZOLE [Concomitant]

REACTIONS (2)
  - CONVULSION [None]
  - ENCEPHALOPATHY [None]
